FAERS Safety Report 20286475 (Version 1)
Quarter: 2022Q1

REPORT INFORMATION
  Report Type: Report from Study
  Country: CN (occurrence: CN)
  Receive Date: 20220103
  Receipt Date: 20220103
  Transmission Date: 20220424
  Serious: Yes (Death, Other)
  Sender: FDA-Public Use
  Company Number: CN-Accord-248143

PATIENT
  Age: 60 Year
  Sex: Male

DRUGS (1)
  1. DECITABINE [Suspect]
     Active Substance: DECITABINE
     Indication: Myelodysplastic syndrome
     Dosage: 10-DAY REGIMEN (6 MG/ (M2.D)*10 D
     Route: 042

REACTIONS (4)
  - Urinary tract infection [Unknown]
  - Myelosuppression [Unknown]
  - Pneumonia [Unknown]
  - Cardiac failure [Fatal]
